FAERS Safety Report 4970507-7 (Version None)
Quarter: 2006Q2

REPORT INFORMATION
  Report Type: 
  Country: None (occurrence: None)
  Receive Date: 20060412
  Receipt Date: 20060329
  Transmission Date: 20061013
  Serious: Yes (Death)
  Sender: FDA-Public Use
  Company Number: US-NOVOPROD-252030

PATIENT
  Age: 44 Year
  Sex: Male

DRUGS (5)
  1. NOVOSEVEN [Suspect]
     Indication: TRAUMATIC HAEMORRHAGE
     Dosage: 90 UG/KG, SINGLE
     Dates: start: 20060301
  2. BLOOD CELLS, PACKED HUMAN [Concomitant]
     Indication: TRAUMATIC HAEMORRHAGE
     Dosage: UNKNOWN
     Dates: start: 20060301, end: 20060301
  3. FRESH FROZEN PLASMA [Concomitant]
     Indication: TRAUMATIC HAEMORRHAGE
     Dosage: UNKNOWN
     Dates: start: 20060301, end: 20060301
  4. PLATELETS [Concomitant]
     Indication: TRAUMATIC HAEMORRHAGE
     Dosage: UNKNOWN
     Dates: start: 20060301, end: 20060301
  5. KRIOPRECIPITAT [Concomitant]
     Indication: TRAUMATIC HAEMORRHAGE
     Dosage: UNKNOWN
     Dates: start: 20060301, end: 20060301

REACTIONS (2)
  - CONCOMITANT DISEASE PROGRESSION [None]
  - DEATH [None]
